FAERS Safety Report 20433804 (Version 1)
Quarter: 2022Q1

REPORT INFORMATION
  Report Type: Spontaneous
  Country: US (occurrence: US)
  Receive Date: 20220205
  Receipt Date: 20220205
  Transmission Date: 20220423
  Serious: No
  Sender: FDA-Public Use
  Company Number: US-SA-2018SA079940

PATIENT
  Age: 29 Year
  Sex: Male
  Weight: 55 kg

DRUGS (1)
  1. VANDETANIB [Suspect]
     Active Substance: VANDETANIB
     Indication: Thyroid cancer
     Dosage: 300 MG,QD
     Route: 048
     Dates: start: 20171025

REACTIONS (5)
  - Productive cough [Unknown]
  - Diarrhoea [Unknown]
  - Rash [Unknown]
  - Acne [Unknown]
  - Intentional product misuse [Unknown]
